FAERS Safety Report 17853476 (Version 2)
Quarter: 2020Q2

REPORT INFORMATION
  Report Type: Spontaneous
  Country: JP (occurrence: JP)
  Receive Date: 20200603
  Receipt Date: 20200605
  Transmission Date: 20200714
  Serious: Yes (Life-Threatening, Other)
  Sender: FDA-Public Use
  Company Number: JP-SA-2020SA139230

PATIENT

DRUGS (4)
  1. LEUCOVORIN AMAXA [Concomitant]
     Indication: COLON CANCER
     Dosage: UNK
     Route: 065
     Dates: start: 20190924, end: 20200519
  2. ZALTRAP [Suspect]
     Active Substance: ZIV-AFLIBERCEPT
     Indication: COLON CANCER
     Dosage: 4 MG/KG, QOW
     Route: 041
     Dates: start: 20190924, end: 20200519
  3. FLUOROURACIL. [Suspect]
     Active Substance: FLUOROURACIL
     Indication: COLON CANCER
     Dosage: UNK
     Route: 042
     Dates: start: 20190924, end: 20200519
  4. IRINOTECAN [Suspect]
     Active Substance: IRINOTECAN
     Indication: COLON CANCER
     Dosage: UNK
     Route: 065
     Dates: start: 20190924, end: 20200519

REACTIONS (4)
  - Encephalitis autoimmune [Not Recovered/Not Resolved]
  - Fall [Recovered/Resolved]
  - Atonic seizures [Not Recovered/Not Resolved]
  - Asthenia [Not Recovered/Not Resolved]

NARRATIVE: CASE EVENT DATE: 20200522
